FAERS Safety Report 13602697 (Version 1)
Quarter: 2017Q2

REPORT INFORMATION
  Report Type: Spontaneous
  Country: HR (occurrence: HR)
  Receive Date: 20170601
  Receipt Date: 20170601
  Transmission Date: 20170830
  Serious: Yes (Hospitalization, Other)
  Sender: FDA-Public Use
  Company Number: PHHY2017HR077404

PATIENT
  Age: 47 Year
  Sex: Male
  Weight: 78 kg

DRUGS (1)
  1. VOLTAREN [Suspect]
     Active Substance: DICLOFENAC SODIUM
     Indication: BODY TEMPERATURE INCREASED
     Dosage: 50 MG, QD, 5 TABLETS
     Route: 048
     Dates: start: 20050821, end: 20050821

REACTIONS (12)
  - Myocarditis [Recovered/Resolved]
  - Stevens-Johnson syndrome [Recovered/Resolved]
  - Generalised oedema [Recovered/Resolved]
  - Bronchitis [Recovered/Resolved]
  - Pleural effusion [Recovered/Resolved]
  - Enanthema [Recovered/Resolved]
  - Rash macular [Recovered/Resolved]
  - Overdose [Unknown]
  - Sepsis [Recovered/Resolved]
  - Hepatic lesion [Recovered/Resolved]
  - Body temperature increased [Recovered/Resolved]
  - Secretion discharge [Recovered/Resolved]

NARRATIVE: CASE EVENT DATE: 20050821
